FAERS Safety Report 13227976 (Version 1)
Quarter: 2017Q1

REPORT INFORMATION
  Report Type: Report from Study
  Country: US (occurrence: US)
  Receive Date: 20170213
  Receipt Date: 20170213
  Transmission Date: 20170428
  Serious: Yes (Hospitalization)
  Sender: FDA-Public Use
  Company Number: US-ACTELION-A-US2016-141970

PATIENT
  Age: 73 Year
  Sex: Female
  Weight: 83.45 kg

DRUGS (9)
  1. UPTRAVI [Suspect]
     Active Substance: SELEXIPAG
     Dosage: 200 MCG, UNK
     Route: 048
     Dates: start: 20160823
  2. UPTRAVI [Suspect]
     Active Substance: SELEXIPAG
     Dosage: 600 MCG, BID
     Route: 048
     Dates: start: 20160823
  3. OPSUMIT [Suspect]
     Active Substance: MACITENTAN
     Indication: PULMONARY ARTERIAL HYPERTENSION
     Dosage: 10 MG, QD
     Route: 048
     Dates: start: 20150903
  4. ELIQUIS [Concomitant]
     Active Substance: APIXABAN
  5. UPTRAVI [Suspect]
     Active Substance: SELEXIPAG
     Dosage: 800 MCG, BID
     Route: 048
  6. UPTRAVI [Suspect]
     Active Substance: SELEXIPAG
     Indication: PULMONARY ARTERIAL HYPERTENSION
     Dosage: 1000 MCG
     Route: 048
  7. UPTRAVI [Suspect]
     Active Substance: SELEXIPAG
     Dosage: 1200 MCG, BID
     Route: 048
  8. UPTRAVI [Suspect]
     Active Substance: SELEXIPAG
     Dosage: 400 MCG, BID
     Route: 048
  9. DILTIAZEM. [Concomitant]
     Active Substance: DILTIAZEM

REACTIONS (19)
  - Cardiac disorder [Unknown]
  - Muscle spasms [Unknown]
  - Pain in extremity [Unknown]
  - Anaemia [Unknown]
  - Weight increased [Unknown]
  - Eye swelling [Recovered/Resolved]
  - Fatigue [Unknown]
  - Head injury [Unknown]
  - Blood glucose increased [Unknown]
  - Back pain [Unknown]
  - Condition aggravated [Unknown]
  - Neuropathy peripheral [Unknown]
  - Headache [Unknown]
  - Oedema [Unknown]
  - Spinal column stenosis [Unknown]
  - Anxiety [Unknown]
  - Fall [Unknown]
  - Pain [Unknown]
  - Dyspnoea [Unknown]

NARRATIVE: CASE EVENT DATE: 20160831
